FAERS Safety Report 19474221 (Version 2)
Quarter: 2021Q3

REPORT INFORMATION
  Report Type: Spontaneous
  Country: US (occurrence: US)
  Receive Date: 20210630
  Receipt Date: 20210702
  Transmission Date: 20211014
  Serious: Yes (Death, Hospitalization)
  Sender: FDA-Public Use
  Company Number: US-JNJFOC-20210645560

PATIENT
  Age: 16 Year
  Sex: Female

DRUGS (1)
  1. TYLENOL [Suspect]
     Active Substance: ACETAMINOPHEN
     Indication: PRODUCT USED FOR UNKNOWN INDICATION
     Route: 065

REACTIONS (11)
  - Acute kidney injury [Fatal]
  - Lethargy [Fatal]
  - Hepatic necrosis [Fatal]
  - Completed suicide [Fatal]
  - Myocardial necrosis [Fatal]
  - Metabolic acidosis [Fatal]
  - Brain oedema [Fatal]
  - Brain injury [Fatal]
  - Intentional overdose [Fatal]
  - Coagulopathy [Fatal]
  - Acute respiratory distress syndrome [Fatal]
